FAERS Safety Report 11719670 (Version 1)
Quarter: 2015Q4

REPORT INFORMATION
  Report Type: Report from Study
  Country: CA (occurrence: CA)
  Receive Date: 20151110
  Receipt Date: 20151110
  Transmission Date: 20160304
  Serious: Yes (Other)
  Sender: FDA-Public Use
  Company Number: CA-AMGEN-CANSL2015116158

PATIENT
  Age: 91 Year
  Sex: Female

DRUGS (3)
  1. VITAMINS C [Concomitant]
     Route: 065
  2. VITAMIN D                          /00107901/ [Concomitant]
     Active Substance: ERGOCALCIFEROL
     Route: 065
  3. PROLIA [Suspect]
     Active Substance: DENOSUMAB
     Indication: OSTEOPOROSIS
     Dosage: 60 MG, UNK
     Route: 058
     Dates: start: 20141127

REACTIONS (10)
  - Drug effect incomplete [Unknown]
  - Asthenia [Not Recovered/Not Resolved]
  - Balance disorder [Not Recovered/Not Resolved]
  - Insomnia [Recovering/Resolving]
  - Night sweats [Recovering/Resolving]
  - Pain [Not Recovered/Not Resolved]
  - Bone pain [Not Recovered/Not Resolved]
  - Cold sweat [Recovering/Resolving]
  - Musculoskeletal pain [Not Recovered/Not Resolved]
  - Skin cancer [Not Recovered/Not Resolved]
